FAERS Safety Report 4782007-8 (Version None)
Quarter: 2005Q3

REPORT INFORMATION
  Report Type: 
  Country: None (occurrence: None)
  Receive Date: 20050914
  Receipt Date: 20041012
  Transmission Date: 20060218
  Serious: Yes (Hospitalization)
  Sender: FDA-Public Use
  Company Number: 163-20785-04100296

PATIENT
  Age: 62 Year
  Sex: Male

DRUGS (1)
  1. THALOMID [Suspect]
     Dosage: ORAL
     Route: 048
     Dates: start: 20040909, end: 20040922

REACTIONS (3)
  - CARDIAC FAILURE CONGESTIVE [None]
  - DYSGEUSIA [None]
  - SILENT MYOCARDIAL INFARCTION [None]
